FAERS Safety Report 15773568 (Version 1)
Quarter: 2018Q4

REPORT INFORMATION
  Report Type: Spontaneous
  Country: CO (occurrence: CO)
  Receive Date: 20181228
  Receipt Date: 20181228
  Transmission Date: 20190205
  Serious: Yes (Other)
  Sender: FDA-Public Use
  Company Number: CO-AMGEN-COLSP2018148446

PATIENT
  Age: 50 Year
  Sex: Male

DRUGS (1)
  1. ENBREL [Suspect]
     Active Substance: ETANERCEPT
     Indication: ANKYLOSING SPONDYLITIS
     Dosage: 50 MG, QWK
     Route: 058
     Dates: start: 201806, end: 2018

REACTIONS (4)
  - Gait inability [Unknown]
  - Joint effusion [Unknown]
  - Drug ineffective [Unknown]
  - Abdominal pain [Unknown]

NARRATIVE: CASE EVENT DATE: 2018
